FAERS Safety Report 6588107-4 (Version None)
Quarter: 2010Q1

REPORT INFORMATION
  Report Type: 
  Country: None (occurrence: None)
  Receive Date: 20100218
  Receipt Date: 20100216
  Transmission Date: 20100710
  Serious: Yes (Death, Other)
  Sender: FDA-Public Use
  Company Number: PHEH2009US17827

PATIENT
  Sex: Male

DRUGS (1)
  1. EXJADE [Suspect]
     Indication: IRON OVERLOAD
     Dosage: 2500 MG, QD
     Route: 048
     Dates: start: 20080418

REACTIONS (2)
  - ALLOGENIC BONE MARROW TRANSPLANTATION THERAPY [None]
  - COMPLICATIONS OF BONE MARROW TRANSPLANT [None]
